FAERS Safety Report 6184314-3 (Version None)
Quarter: 2009Q2

REPORT INFORMATION
  Report Type: 
  Country: None (occurrence: None)
  Receive Date: 20090501
  Receipt Date: 20080714
  Transmission Date: 20091009
  Serious: Yes (Other)
  Sender: FDA-Public Use
  Company Number: 174442USA

PATIENT
  Age: 31 Year
  Sex: Female
  Weight: 43.0917 kg

DRUGS (1)
  1. OXYCODONE HYDROCHLORIDE [Suspect]
     Indication: PAIN MANAGEMENT
     Dosage: 240 MG (80 MG, 3 IN 1 D), ORAL
     Route: 048
     Dates: start: 20080413, end: 20080419

REACTIONS (3)
  - DRUG INEFFECTIVE [None]
  - INADEQUATE ANALGESIA [None]
  - OVERDOSE [None]
